FAERS Safety Report 15960395 (Version 1)
Quarter: 2019Q1

REPORT INFORMATION
  Report Type: Spontaneous
  Country: US (occurrence: US)
  Receive Date: 20190214
  Receipt Date: 20190214
  Transmission Date: 20190417
  Serious: No
  Sender: FDA-Public Use
  Company Number: US-ROCHE-2254873

PATIENT
  Sex: Male

DRUGS (2)
  1. ASPIRIN. [Concomitant]
     Active Substance: ASPIRIN
  2. ERIVEDGE [Suspect]
     Active Substance: VISMODEGIB
     Indication: BASAL CELL CARCINOMA
     Dosage: 150 MG ONCE A DAY; ONGOING: YES
     Route: 048
     Dates: start: 201812

REACTIONS (4)
  - Fatigue [Unknown]
  - Ageusia [Unknown]
  - Muscle spasms [Unknown]
  - Poor quality sleep [Unknown]
